FAERS Safety Report 7057013-3 (Version None)
Quarter: 2010Q4

REPORT INFORMATION
  Report Type: 
  Country: None (occurrence: None)
  Receive Date: 20101021
  Receipt Date: 20101021
  Transmission Date: 20110411
  Serious: Yes (Other)
  Sender: FDA-Public Use
  Company Number: None

PATIENT
  Age: 3 Month
  Sex: Female
  Weight: 5.4432 kg

DRUGS (1)
  1. LITTLE REMEDIES LITTLE NOSES 1.25% PHENYLEPHRINE MEDTECH PRODUCTS [Suspect]
     Indication: NASAL CONGESTION
     Dosage: ONE ML EVERY TWO HOURS NASAL
     Route: 045
     Dates: start: 20101012, end: 20101018

REACTIONS (2)
  - INCORRECT DOSE ADMINISTERED [None]
  - PRODUCT LABEL CONFUSION [None]
